FAERS Safety Report 10715051 (Version 2)
Quarter: 2015Q1

REPORT INFORMATION
  Report Type: Spontaneous
  Country: JP (occurrence: JP)
  Receive Date: 20150115
  Receipt Date: 20150130
  Transmission Date: 20150721
  Serious: Yes (Hospitalization, Other)
  Sender: FDA-Public Use
  Company Number: JP-GLAXOSMITHKLINE-JP2015JPN000215

PATIENT
  Age: 89 Year
  Sex: Female
  Weight: 45 kg

DRUGS (1)
  1. VALTREX [Suspect]
     Active Substance: VALACYCLOVIR HYDROCHLORIDE
     Indication: HERPES ZOSTER
     Dosage: 1000 MG, TID
     Route: 048
     Dates: start: 20141231, end: 20150104

REACTIONS (8)
  - Acute kidney injury [Recovering/Resolving]
  - Abnormal behaviour [Unknown]
  - Toxic encephalopathy [Recovering/Resolving]
  - Altered state of consciousness [Unknown]
  - Hallucination [Unknown]
  - Overdose [Unknown]
  - Dementia [Unknown]
  - White matter lesion [Unknown]

NARRATIVE: CASE EVENT DATE: 201412
